FAERS Safety Report 6394379-1 (Version None)
Quarter: 2009Q4

REPORT INFORMATION
  Report Type: 
  Country: None (occurrence: None)
  Receive Date: 20091006
  Receipt Date: 20090928
  Transmission Date: 20100525
  Serious: Yes (Hospitalization)
  Sender: FDA-Public Use
  Company Number: ADR33752009

PATIENT
  Age: 48 Year
  Sex: Female

DRUGS (2)
  1. LAMOTRIGINE [Suspect]
     Indication: MYOCLONIC EPILEPSY
     Dosage: 25 MG - 1/1 DAY AND 50 MG - 1/1 DAY
  2. CARBAMAZEPINE [Concomitant]

REACTIONS (16)
  - ALANINE AMINOTRANSFERASE INCREASED [None]
  - BLOOD SODIUM DECREASED [None]
  - CHILLS [None]
  - DISORIENTATION [None]
  - DRUG RASH WITH EOSINOPHILIA AND SYSTEMIC SYMPTOMS [None]
  - HEADACHE [None]
  - HYPOTENSION [None]
  - MENINGITIS ASEPTIC [None]
  - MUSCULOSKELETAL STIFFNESS [None]
  - NAUSEA [None]
  - NEUTROPHILIA [None]
  - PHOTOPHOBIA [None]
  - PLATELET COUNT DECREASED [None]
  - TACHYCARDIA [None]
  - VIRAL INFECTION [None]
  - VOMITING [None]
